FAERS Safety Report 6797359-7 (Version None)
Quarter: 2010Q2

REPORT INFORMATION
  Report Type: 
  Country: None (occurrence: None)
  Receive Date: 20100623
  Receipt Date: 20100610
  Transmission Date: 20101027
  Serious: Yes (Death)
  Sender: FDA-Public Use
  Company Number: 2010SCPR001363

PATIENT
  Age: 76 Year
  Sex: Male

DRUGS (4)
  1. MEGACE ES [Suspect]
     Indication: DECREASED APPETITE
     Dosage: ORAL
     Route: 048
     Dates: start: 20100301
  2. POTASSIUM (POTASSIUM) [Concomitant]
  3. LASIX [Concomitant]
  4. NEXAVAR [Concomitant]

REACTIONS (4)
  - ALANINE AMINOTRANSFERASE DECREASED [None]
  - ASPARTATE AMINOTRANSFERASE INCREASED [None]
  - BLOOD ALKALINE PHOSPHATASE INCREASED [None]
  - BLOOD BILIRUBIN INCREASED [None]
